FAERS Safety Report 5065220-4 (Version None)
Quarter: 2006Q3

REPORT INFORMATION
  Report Type: 
  Country: None (occurrence: None)
  Receive Date: 20060725
  Receipt Date: 20060717
  Transmission Date: 20061208
  Serious: Yes (Death)
  Sender: FDA-Public Use
  Company Number: GXKR2006NO01141

PATIENT
  Age: 82 Year
  Sex: Female

DRUGS (6)
  1. RIFAMPICIN [Suspect]
     Indication: TUBERCULOUS PLEURISY
     Dosage: 600 MG, ORAL
     Route: 048
     Dates: start: 20051213, end: 20060120
  2. ISONIAZID [Suspect]
     Indication: TUBERCULOUS PLEURISY
     Dosage: 600 MG, ORAL
     Route: 048
     Dates: start: 20051213, end: 20060120
  3. ALLOPUR (ALLOPURINOL) [Concomitant]
  4. PYRIDOXINE (PYRIDOXINE) [Concomitant]
  5. METOPROLOL SUCCINATE [Concomitant]
  6. COZAAR COMP (HYDROCHLOROTHIAZIDE, LOSARTAN POTASSIUM) [Concomitant]

REACTIONS (7)
  - BLOOD BILIRUBIN INCREASED [None]
  - HEPATIC FAILURE [None]
  - HEPATOCELLULAR DAMAGE [None]
  - HEPATORENAL SYNDROME [None]
  - JAUNDICE [None]
  - TRANSAMINASES INCREASED [None]
  - VOMITING [None]
